FAERS Safety Report 24595733 (Version 1)
Quarter: 2024Q4

REPORT INFORMATION
  Report Type: Spontaneous
  Country: IT (occurrence: IT)
  Receive Date: 20241109
  Receipt Date: 20241109
  Transmission Date: 20250115
  Serious: Yes (Hospitalization, Other)
  Sender: ABBVIE
  Company Number: IT-ABBVIE-5959496

PATIENT
  Age: 78 Year
  Sex: Male

DRUGS (16)
  1. OZURDEX [Suspect]
     Active Substance: DEXAMETHASONE
     Indication: Retinal vein occlusion
     Dosage: TIME INTERVAL: AS NECESSARY: FREQUENCY TEXT: 1/6 MONTHS
     Route: 050
     Dates: start: 20241004, end: 20241004
  2. OZURDEX [Suspect]
     Active Substance: DEXAMETHASONE
     Indication: Diabetic retinal oedema
  3. SILODOSIN [Concomitant]
     Active Substance: SILODOSIN
     Indication: Product used for unknown indication
     Dosage: 8 MILLIGRAM?FREQUENCY TEXT: AT 03:00 PM
  4. CARDIOASPIRINA [Concomitant]
     Active Substance: ASPIRIN
     Indication: Product used for unknown indication
     Dosage: 100 MILLIGRAM?FREQUENCY TEXT: LUNCH, AT 01:00 PM
     Route: 065
  5. Luvion [Concomitant]
     Indication: Product used for unknown indication
     Dosage: 1/2 50 MG?FREQUENCY TEXT: AT 03:00 PM
  6. METFORMIN HYDROCHLORIDE [Concomitant]
     Active Substance: METFORMIN HYDROCHLORIDE
     Indication: Product used for unknown indication
     Dosage: 500 MILLIGRAM?FREQUENCY TEXT: DAILY, IN THE MORNING AT 08:00 AM ,FREQUENCY TEXT: LUNCH, AT 01:00 ...
  7. ATORVASTATIN [Concomitant]
     Active Substance: ATORVASTATIN
     Indication: Product used for unknown indication
     Dosage: 40 MILLIGRAM?FREQUENCY TEXT: AT 10:00 PM
     Route: 065
  8. DIAMICRON [Concomitant]
     Indication: Product used for unknown indication
     Dosage: 1/2 60 MG
  9. DISERINAL [Concomitant]
     Indication: Product used for unknown indication
     Dosage: 1 MILLIGRAM?FREQUENCY TEXT: LUNCH, AT 01:00 PM
     Route: 065
  10. ASCORBIC ACID\FERRIC PYROPHOSPHATE [Concomitant]
     Active Substance: ASCORBIC ACID\FERRIC PYROPHOSPHATE
     Indication: Product used for unknown indication
     Dosage: FREQUENCY TEXT: NOT REPORTED
     Route: 065
  11. CLOPIDOGREL [Concomitant]
     Active Substance: CLOPIDOGREL BISULFATE
     Indication: Product used for unknown indication
     Dosage: 75 MILLIGRAM?FREQUENCY TEXT: DAILY, IN THE MORNING AT 08:00 AM
     Route: 065
  12. METOPROLOL [Concomitant]
     Active Substance: METOPROLOL
     Indication: Product used for unknown indication
     Dosage: 1/4 100 MG?- FREQUENCY TEXT: DAILY, IN THE MORNING AT 08:00 AM?- FREQUENCY TEXT: AT 08:00 PM
  13. AMLODIPINE [Concomitant]
     Active Substance: AMLODIPINE BESYLATE
     Indication: Product used for unknown indication
     Dosage: 5 MILLIGRAM, FREQUENCY TEXT: AT 08:00 PM
     Route: 065
  14. PANTOPRAZOLE SODIUM [Concomitant]
     Active Substance: PANTOPRAZOLE SODIUM
     Indication: Product used for unknown indication
     Dosage: 20 MILLIGRAM?FREQUENCY TEXT: DAILY, IN THE MORNING AT 08:00 AM
     Route: 065
  15. JARDIANCE [Concomitant]
     Active Substance: EMPAGLIFLOZIN
     Indication: Product used for unknown indication
     Dosage: 10 MILLIGRAM?FREQUENCY TEXT: AT 03:00 PM
  16. VALSARTAN [Concomitant]
     Active Substance: VALSARTAN
     Indication: Product used for unknown indication
     Dosage: 80 MILLIGRAM?FREQUENCY TEXT: DAILY, IN THE MORNING AT 08:00 AM

REACTIONS (3)
  - Enterococcal infection [Recovering/Resolving]
  - Endophthalmitis [Recovering/Resolving]
  - Retinal vein occlusion [Unknown]

NARRATIVE: CASE EVENT DATE: 20241005
